FAERS Safety Report 18563555 (Version 1)
Quarter: 2020Q4

REPORT INFORMATION
  Report Type: Spontaneous
  Country: FR (occurrence: FR)
  Receive Date: 20201201
  Receipt Date: 20201201
  Transmission Date: 20210114
  Serious: Yes (Hospitalization)
  Sender: FDA-Public Use
  Company Number: FR-TEVA-2020-FR-1853355

PATIENT
  Age: 76 Year
  Sex: Male
  Weight: 85 kg

DRUGS (9)
  1. DAPTOMYCINE [Concomitant]
     Active Substance: DAPTOMYCIN
     Indication: ARTHRITIS BACTERIAL
     Dosage: UNIT DOSE : 850 MG
     Route: 048
     Dates: start: 20200717
  2. AUGMENTIN [Suspect]
     Active Substance: AMOXICILLIN\CLAVULANATE POTASSIUM
     Indication: TOOTH ABSCESS
     Dosage: UNIT DOSE : 4 GRAM
     Route: 048
     Dates: start: 20200710, end: 20200717
  3. METFORMINE [Concomitant]
     Active Substance: METFORMIN HYDROCHLORIDE
     Indication: INSULIN-REQUIRING TYPE 2 DIABETES MELLITUS
     Dosage: UNIT DOSE : 2 GRAM
     Route: 048
     Dates: end: 20200720
  4. AMOXICILLINE ANHYDRE [Suspect]
     Active Substance: AMOXICILLIN
     Indication: ARTHRITIS BACTERIAL
     Dosage: UNIT DOSE : 12 GRAM
     Route: 048
     Dates: start: 20200717, end: 20200721
  5. CALCIPARINE [Concomitant]
     Active Substance: HEPARIN CALCIUM
     Indication: THROMBOSIS PROPHYLAXIS
     Dosage: UNIT DOSE : 2 DOSAGE FORMS
     Route: 058
     Dates: start: 20200717
  6. LERCAN 10 MG, COMPRIME PELLICULE SECABLE [Concomitant]
     Active Substance: LERCANIDIPINE HYDROCHLORIDE
     Indication: HYPERTENSION
     Dosage: UNIT DOSE : 1 DOSAGE FORMS
     Route: 048
     Dates: end: 20200721
  7. ABASAGLAR [Concomitant]
     Active Substance: INSULIN GLARGINE
     Indication: INSULIN-REQUIRING TYPE 2 DIABETES MELLITUS
     Route: 058
  8. LISINOPRIL ANHYDRE [Suspect]
     Active Substance: LISINOPRIL
     Indication: HYPERTENSION
     Dosage: UNIT DOSE : 20 MG
     Route: 048
     Dates: end: 20200720
  9. APIDRA [Concomitant]
     Active Substance: INSULIN GLULISINE
     Indication: INSULIN-REQUIRING TYPE 2 DIABETES MELLITUS
     Route: 058

REACTIONS (3)
  - Renal tubular necrosis [Not Recovered/Not Resolved]
  - Renal failure [Recovered/Resolved]
  - Acute kidney injury [Not Recovered/Not Resolved]

NARRATIVE: CASE EVENT DATE: 20200720
